FAERS Safety Report 15843991 (Version 1)
Quarter: 2019Q1

REPORT INFORMATION
  Report Type: Report from Study
  Country: US (occurrence: US)
  Receive Date: 20190118
  Receipt Date: 20190118
  Transmission Date: 20190417
  Serious: Yes (Hospitalization)
  Sender: FDA-Public Use
  Company Number: US-BRISTOL-MYERS SQUIBB COMPANY-BMS-2019-002687

PATIENT
  Age: 67 Year
  Sex: Female
  Weight: 79.7 kg

DRUGS (2)
  1. NIVOLUMAB [Suspect]
     Active Substance: NIVOLUMAB
     Indication: UTERINE CANCER
     Dosage: UNK UNK, QCYCLE
     Route: 042
     Dates: start: 20181017
  2. CABOZANTINIB [Suspect]
     Active Substance: CABOZANTINIB
     Indication: UTERINE CANCER
     Dosage: UNK UNK, QCYCLE
     Route: 048
     Dates: start: 20181017

REACTIONS (3)
  - Blood creatine phosphokinase increased [Recovered/Resolved]
  - Troponin T increased [Recovering/Resolving]
  - Dyspepsia [Recovering/Resolving]

NARRATIVE: CASE EVENT DATE: 20181212
